FAERS Safety Report 13325841 (Version 3)
Quarter: 2017Q3

REPORT INFORMATION
  Report Type: Spontaneous
  Country: US (occurrence: US)
  Receive Date: 20170310
  Receipt Date: 20170810
  Transmission Date: 20171127
  Serious: Yes (Death, Hospitalization)
  Sender: FDA-Public Use
  Company Number: US-VIFOR (INTERNATIONAL) INC.-VIT-2017-02496

PATIENT
  Sex: Male
  Weight: 127.12 kg

DRUGS (8)
  1. ACETYLSALICYLIC ACID [Concomitant]
     Active Substance: ASPIRIN
  2. B12-ACTIVE [Concomitant]
  3. GLUCOSAMINE 1500 COMPLEX [Concomitant]
  4. NOVOLOG [Concomitant]
     Active Substance: INSULIN ASPART
  5. VITAMINS NOS [Concomitant]
     Active Substance: VITAMINS
  6. OCUVITE ADULT FORMULA [Concomitant]
  7. LANTUS [Concomitant]
     Active Substance: INSULIN GLARGINE
  8. VELTASSA [Suspect]
     Active Substance: PATIROMER
     Indication: HYPERKALAEMIA
     Route: 048
     Dates: start: 20170110, end: 20170212

REACTIONS (10)
  - Feeling abnormal [Unknown]
  - Sleep apnoea syndrome [Fatal]
  - Renal impairment [Recovered/Resolved]
  - Apparent death [Unknown]
  - General physical health deterioration [Unknown]
  - Infection [Unknown]
  - Dyspnoea [Unknown]
  - Oedema peripheral [Unknown]
  - Initial insomnia [Unknown]
  - Fluid retention [Unknown]

NARRATIVE: CASE EVENT DATE: 2017
